FAERS Safety Report 9736730 (Version 1)
Quarter: 2013Q4

REPORT INFORMATION
  Report Type: Spontaneous
  Country: CA (occurrence: CA)
  Receive Date: 20131206
  Receipt Date: 20131206
  Transmission Date: 20140711
  Serious: Yes (Disabling)
  Sender: FDA-Public Use
  Company Number: CA-B.I. PHARMACEUTICALS,INC./RIDGEFIELD-2013-BI-40114CN

PATIENT
  Age: 80 Year
  Sex: Male
  Weight: 100 kg

DRUGS (6)
  1. PRADAXA [Suspect]
     Dosage: 220 MG
     Route: 048
  2. ACETYSALICYLIC ACID [Concomitant]
  3. ATORVASTATIN [Concomitant]
  4. DOCUSATE SODIUM [Concomitant]
  5. QUINAPRIL [Concomitant]
  6. SENOKOT [Concomitant]

REACTIONS (1)
  - Hypoaesthesia [Recovered/Resolved]
